FAERS Safety Report 21578795 (Version 1)
Quarter: 2022Q4

REPORT INFORMATION
  Report Type: Report from Study
  Country: US (occurrence: US)
  Receive Date: 20221110
  Receipt Date: 20221110
  Transmission Date: 20230113
  Serious: No
  Sender: FDA-Public Use
  Company Number: US-ABBVIE-22K-163-4429787-00

PATIENT
  Sex: Female

DRUGS (4)
  1. HUMIRA [Suspect]
     Active Substance: ADALIMUMAB
     Indication: Psoriasis
     Dosage: TIME INTERVAL: 1 TOTAL: DAY 1
     Route: 058
     Dates: start: 20211214, end: 20211214
  2. HUMIRA [Suspect]
     Active Substance: ADALIMUMAB
     Route: 058
     Dates: start: 20220111
  3. HUMIRA [Suspect]
     Active Substance: ADALIMUMAB
     Dosage: TIME INTERVAL: 1 TOTAL: DAY 15
     Route: 058
     Dates: start: 20211228, end: 20211228
  4. HUMIRA [Suspect]
     Active Substance: ADALIMUMAB
     Dosage: FORM STRENGTH: 40 MG
     Route: 058
     Dates: start: 20220111

REACTIONS (4)
  - Off label use [Unknown]
  - Abdominal discomfort [Unknown]
  - Frequent bowel movements [Unknown]
  - Vomiting [Unknown]
